FAERS Safety Report 25258745 (Version 4)
Quarter: 2025Q4

REPORT INFORMATION
  Report Type: Spontaneous
  Country: CN (occurrence: CN)
  Receive Date: 20250501
  Receipt Date: 20251121
  Transmission Date: 20260118
  Serious: Yes (Hospitalization)
  Sender: ESTEVE
  Company Number: CN-Esteve Pharmaceuticals SA-2175922

PATIENT
  Age: 58 Year
  Sex: Female

DRUGS (9)
  1. LYSODREN [Suspect]
     Active Substance: MITOTANE
     Indication: Adrenocortical carcinoma
     Dates: start: 20240321, end: 20250414
  2. LYSODREN [Suspect]
     Active Substance: MITOTANE
     Dates: end: 20250331
  3. METHYLCOBALAMIN [Concomitant]
     Active Substance: METHYLCOBALAMIN
  4. ESSENTIALE [Concomitant]
  5. HYDROCORTISONE [Concomitant]
     Active Substance: HYDROCORTISONE
  6. LYSODREN [Suspect]
     Active Substance: MITOTANE
     Dates: start: 202507
  7. ONDANSETRON [Concomitant]
     Active Substance: ONDANSETRON
  8. METOCLOPRAMIDE [Concomitant]
     Active Substance: METOCLOPRAMIDE
  9. LYSODREN [Suspect]
     Active Substance: MITOTANE
     Dates: start: 20250331, end: 202504

REACTIONS (4)
  - Nausea [Recovering/Resolving]
  - Gastrointestinal disorder [Unknown]
  - Blood pressure decreased [Recovered/Resolved]
  - Vomiting [Recovering/Resolving]

NARRATIVE: CASE EVENT DATE: 20250413
